FAERS Safety Report 4502037-0 (Version None)
Quarter: 2004Q4

REPORT INFORMATION
  Report Type: 
  Country: None (occurrence: None)
  Receive Date: 20041115
  Receipt Date: 20041115
  Transmission Date: 20050328
  Serious: Yes (Hospitalization)
  Sender: FDA-Public Use
  Company Number: None

PATIENT
  Sex: Male
  Weight: 97.1 kg

DRUGS (12)
  1. BUSPIRONE 10MG [Suspect]
     Indication: DYSPNOEA
     Dosage: 20 MG DAILY ORAL
     Route: 048
     Dates: start: 20041101, end: 20041109
  2. PLACEBO [Suspect]
  3. AMIODARONE [Concomitant]
  4. FLOMAX [Concomitant]
  5. METOPROLOL [Concomitant]
  6. LISINOPRIL [Concomitant]
  7. LIPITOR [Concomitant]
  8. 5-FU [Concomitant]
  9. LEUCOVORIN [Concomitant]
  10. CPT-11 [Concomitant]
  11. DEXAMETHASONE [Concomitant]
  12. ZOFRAN [Concomitant]

REACTIONS (9)
  - CHEST DISCOMFORT [None]
  - CHEST X-RAY ABNORMAL [None]
  - CONDITION AGGRAVATED [None]
  - DYSPNOEA [None]
  - LUNG INFILTRATION [None]
  - MUSCULOSKELETAL DISCOMFORT [None]
  - PLEURAL EFFUSION [None]
  - PULMONARY FIBROSIS [None]
  - PULMONARY MASS [None]
